FAERS Safety Report 7475073-2 (Version None)
Quarter: 2011Q1

REPORT INFORMATION
  Report Type: 
  Country: None (occurrence: None)
  Receive Date: 20110302
  Receipt Date: 20101108
  Transmission Date: 20110831
  Serious: Yes (Hospitalization, Other)
  Sender: FDA-Public Use
  Company Number: 163-21880-10081013

PATIENT
  Age: 79 Year
  Sex: Female
  Weight: 71.759 kg

DRUGS (1)
  1. REVLIMID [Suspect]
     Indication: MYELODYSPLASTIC SYNDROME
     Dosage: 2.5 MG,  1 IN 2 D, PO
     Route: 048
     Dates: start: 20100503, end: 20100817

REACTIONS (12)
  - LEUKOPENIA [None]
  - PAIN IN JAW [None]
  - ANAEMIA [None]
  - ASTHENIA [None]
  - SENSATION OF FOREIGN BODY [None]
  - HYPOAESTHESIA ORAL [None]
  - THROMBOCYTOPENIA [None]
  - RASH [None]
  - PRURITUS [None]
  - DIARRHOEA [None]
  - FATIGUE [None]
  - URINARY TRACT INFECTION [None]
